FAERS Safety Report 9775022 (Version 1)
Quarter: 2013Q4

REPORT INFORMATION
  Report Type: Spontaneous
  Country: US (occurrence: US)
  Receive Date: 20131220
  Receipt Date: 20131220
  Transmission Date: 20140711
  Serious: No
  Sender: FDA-Public Use
  Company Number: US-GLAXOSMITHKLINE-A1038201A

PATIENT
  Sex: Male

DRUGS (2)
  1. AVODART [Suspect]
     Indication: PRODUCT USED FOR UNKNOWN INDICATION
     Route: 048
     Dates: start: 20130817
  2. NO CONCURRENT MEDICATION [Concomitant]

REACTIONS (5)
  - Adverse drug reaction [Unknown]
  - Headache [Unknown]
  - Fatigue [Unknown]
  - Eye irritation [Unknown]
  - Abdominal discomfort [Unknown]
